FAERS Safety Report 4902485-0 (Version None)
Quarter: 2006Q1

REPORT INFORMATION
  Report Type: 
  Country: None (occurrence: None)
  Receive Date: 20060202
  Receipt Date: 20050419
  Transmission Date: 20060701
  Serious: Yes (Hospitalization)
  Sender: FDA-Public Use
  Company Number: DEWYE775827JUN05

PATIENT
  Age: 63 Year
  Sex: Male

DRUGS (12)
  1. TREVILOR RETARD  ER [Suspect]
     Indication: DEPRESSION
     Dosage: 300 MG ORAL
     Route: 048
     Dates: end: 20050404
  2. VENLAFAXINE HCL [Suspect]
     Dosage: 375 MG ORAL
     Route: 048
     Dates: start: 20050405, end: 20050428
  3. TREVILOR RETARD (VENLAFAXINE HYDROCHLORIDE- ER) [Suspect]
     Dosage: 225 MG ORAL
     Route: 048
     Dates: start: 20050429, end: 20050429
  4. TREVILOR RETARD (VENLAFAXINE HYDROCHLORIDE ER) [Suspect]
     Dosage: 150 MG ORAL
     Route: 048
     Dates: start: 20050430, end: 20050430
  5. METOPROLOL SUCCINATE [Suspect]
     Dosage: 47.5 MG ORAL
     Route: 048
     Dates: start: 20050405
  6. MIRTAZAPINE [Suspect]
     Dosage: 15 MG ORAL
     Route: 048
     Dates: start: 20050405, end: 20050417
  7. MIRTAZAPINE [Suspect]
     Dosage: 30 MG ORAL
     Route: 048
     Dates: start: 20050418
  8. TRIMIPRAMINE MALEATE [Suspect]
     Dosage: 50 MG ORAL
     Route: 048
     Dates: start: 20050405, end: 20050417
  9. STANGYL (TRIMIPRAMINE MALEATE) [Suspect]
     Dosage: 25 MG ORAL
     Route: 048
     Dates: start: 20050418, end: 20050428
  10. ZYPREXA [Suspect]
     Dosage: 20 MG ORAL
     Route: 048
     Dates: start: 20050405
  11. LITHIUM CARBONATE [Concomitant]
  12. LORAZEPAM [Concomitant]

REACTIONS (4)
  - ALANINE AMINOTRANSFERASE INCREASED [None]
  - ASPARTATE AMINOTRANSFERASE INCREASED [None]
  - DRUG INTERACTION [None]
  - GAMMA-GLUTAMYLTRANSFERASE INCREASED [None]
